FAERS Safety Report 11796840 (Version 4)
Quarter: 2016Q1

REPORT INFORMATION
  Report Type: Spontaneous
  Country: DE (occurrence: DE)
  Receive Date: 20151203
  Receipt Date: 20160111
  Transmission Date: 20160525
  Serious: Yes (Death, Hospitalization, Other)
  Sender: FDA-Public Use
  Company Number: PHHY2015DE154665

PATIENT
  Sex: Male

DRUGS (5)
  1. CLOZARIL [Suspect]
     Active Substance: CLOZAPINE
     Indication: HALLUCINATION
  2. SEROQUEL [Concomitant]
     Active Substance: QUETIAPINE FUMARATE
     Indication: PARKINSON^S DISEASE
     Dosage: 1 DF, QD  (1 DF TAPERING OFF)
     Route: 065
     Dates: start: 201510, end: 20151022
  3. CLOZARIL [Suspect]
     Active Substance: CLOZAPINE
     Indication: PARKINSON^S DISEASE
     Dosage: 2 DF, QD
     Route: 065
     Dates: start: 20151020, end: 20151022
  4. SEROQUEL [Concomitant]
     Active Substance: QUETIAPINE FUMARATE
     Indication: HALLUCINATION
  5. LEUPROLIDE [Concomitant]
     Active Substance: LEUPROLIDE
     Indication: PROSTATE CANCER
     Dosage: (EVERY 3 MONTHS)
     Route: 065

REACTIONS (32)
  - Gait disturbance [Unknown]
  - Aphonia [Not Recovered/Not Resolved]
  - Aortic stenosis [Unknown]
  - Urinary tract infection [Unknown]
  - Gammopathy [Unknown]
  - Pyrexia [Unknown]
  - Paralysis [Fatal]
  - Pneumonia aspiration [Recovering/Resolving]
  - Tri-iodothyronine decreased [Unknown]
  - Oedema peripheral [Unknown]
  - Amnestic disorder [Unknown]
  - Normochromic normocytic anaemia [Unknown]
  - Platelet count increased [Recovered/Resolved]
  - Lymphocyte percentage decreased [Not Recovered/Not Resolved]
  - Starvation [Fatal]
  - Disturbance in attention [Unknown]
  - Dehydration [Fatal]
  - Dementia with Lewy bodies [Unknown]
  - Prothrombin time prolonged [Not Recovered/Not Resolved]
  - Lung infiltration [Unknown]
  - Illusion [Unknown]
  - Tongue coated [Unknown]
  - Masked facies [Unknown]
  - Delusion [Unknown]
  - Pulmonary fibrosis [Unknown]
  - Cogwheel rigidity [Unknown]
  - Hallucination, visual [Unknown]
  - Cerebellar ataxia [Unknown]
  - Condition aggravated [Unknown]
  - Chronic obstructive pulmonary disease [Unknown]
  - Flatulence [Unknown]
  - Tremor [Unknown]

NARRATIVE: CASE EVENT DATE: 20151020
